FAERS Safety Report 8840428 (Version 2)
Quarter: 2015Q3

REPORT INFORMATION
  Report Type: Report from Study
  Country: US (occurrence: US)
  Receive Date: 20121015
  Receipt Date: 20150824
  Transmission Date: 20151125
  Serious: Yes (Other)
  Sender: FDA-Public Use
  Company Number: US-ROCHE-1139691

PATIENT
  Sex: Male

DRUGS (11)
  1. PROTROPIN [Suspect]
     Active Substance: SOMATREM
     Route: 058
  2. PROTROPIN [Suspect]
     Active Substance: SOMATREM
     Route: 058
  3. FLONASE (UNITED STATES) [Concomitant]
     Route: 045
  4. VASOTEC [Concomitant]
     Active Substance: ENALAPRIL MALEATE
     Indication: HYPERTENSION
     Route: 065
  5. RITALIN [Concomitant]
     Active Substance: METHYLPHENIDATE HYDROCHLORIDE
  6. ADDERALL [Concomitant]
     Active Substance: AMPHETAMINE ASPARTATE\AMPHETAMINE SULFATE\DEXTROAMPHETAMINE SACCHARATE\DEXTROAMPHETAMINE SULFATE
     Dosage: IN THE MORNING
     Route: 065
  7. PROTROPIN [Suspect]
     Active Substance: SOMATREM
     Indication: GROWTH HORMONE DEFICIENCY
     Route: 058
     Dates: start: 19840712
  8. CLARITIN [Concomitant]
     Active Substance: LORATADINE
     Route: 045
  9. PROTROPIN [Suspect]
     Active Substance: SOMATREM
     Route: 058
  10. LUPRON [Concomitant]
     Active Substance: LEUPROLIDE ACETATE
     Route: 058
  11. ADDERALL [Concomitant]
     Active Substance: AMPHETAMINE ASPARTATE\AMPHETAMINE SULFATE\DEXTROAMPHETAMINE SACCHARATE\DEXTROAMPHETAMINE SULFATE
     Dosage: IN THE AFTERNOON
     Route: 065

REACTIONS (8)
  - Diarrhoea [Unknown]
  - Acne [Unknown]
  - Palpitations [Unknown]
  - Hypersensitivity [Unknown]
  - Chest pain [Unknown]
  - Hypothyroidism [Unknown]
  - Attention deficit/hyperactivity disorder [Unknown]
  - Insomnia [Unknown]
